FAERS Safety Report 21727182 (Version 1)
Quarter: 2022Q4

REPORT INFORMATION
  Report Type: Spontaneous
  Country: US (occurrence: None)
  Receive Date: 20221213
  Receipt Date: 20221213
  Transmission Date: 20230113
  Serious: Yes (Other)
  Sender: FDA-Public Use
  Company Number: None

PATIENT
  Age: 70 Year
  Sex: Male
  Weight: 72.2 kg

DRUGS (1)
  1. RITUXAN [Suspect]
     Active Substance: RITUXIMAB
     Indication: Haemophagocytic lymphohistiocytosis
     Dosage: FREQUENCY : WEEKLY;?
     Route: 042
     Dates: start: 20221207

REACTIONS (4)
  - Abdominal pain [None]
  - Infusion related reaction [None]
  - Heart rate increased [None]
  - Hypersensitivity [None]

NARRATIVE: CASE EVENT DATE: 20221207
